FAERS Safety Report 23933564 (Version 1)
Quarter: 2024Q2

REPORT INFORMATION
  Report Type: Spontaneous
  Country: US (occurrence: None)
  Receive Date: 20240603
  Receipt Date: 20240603
  Transmission Date: 20240716
  Serious: Yes (Other)
  Sender: FDA-Public Use
  Company Number: US-MDD US Operations-MDD202405-001771

PATIENT
  Age: 62 Year
  Sex: Male

DRUGS (1)
  1. APOKYN [Suspect]
     Active Substance: APOMORPHINE HYDROCHLORIDE
     Indication: Product used for unknown indication
     Dosage: NOT PROVIDED

REACTIONS (5)
  - General physical health deterioration [Unknown]
  - Weight decreased [Unknown]
  - Decreased appetite [Unknown]
  - Parkinson^s disease [Unknown]
  - Therapy cessation [Unknown]
